FAERS Safety Report 21052263 (Version 4)
Quarter: 2023Q1

REPORT INFORMATION
  Report Type: Spontaneous
  Country: CZ (occurrence: CZ)
  Receive Date: 20220707
  Receipt Date: 20230221
  Transmission Date: 20230418
  Serious: Yes (Life-Threatening, Hospitalization, Other)
  Sender: FDA-Public Use
  Company Number: CZ-BAYER-2022A093220

PATIENT
  Age: 90 Year
  Sex: Male
  Weight: 60 kg

DRUGS (9)
  1. RIVAROXABAN [Suspect]
     Active Substance: RIVAROXABAN
     Indication: Atrial fibrillation
     Dosage: 10 MG, QD
     Route: 048
  2. RIVAROXABAN [Suspect]
     Active Substance: RIVAROXABAN
     Indication: Myocardial ischaemia
     Dosage: 20 MG, QD
     Route: 048
  3. RIVAROXABAN [Suspect]
     Active Substance: RIVAROXABAN
     Indication: Deep vein thrombosis
     Dosage: 15 MG, BID
     Route: 048
  4. PYRIDOXINE [Suspect]
     Active Substance: PYRIDOXINE
  5. VINPOCETINE [Suspect]
     Active Substance: VINPOCETINE
     Dosage: 1 DF, QD
     Route: 048
  6. VINPOCETINE [Concomitant]
     Active Substance: VINPOCETINE
     Dosage: UNK UNK, QD
  7. OMEPRAZOLE [Concomitant]
     Active Substance: OMEPRAZOLE
     Dosage: 40 MG, QD
     Route: 048
  8. FOLIC ACID [Concomitant]
     Active Substance: FOLIC ACID
     Dosage: UNK
  9. FOLIC ACID [Concomitant]
     Active Substance: FOLIC ACID
     Dosage: UNK

REACTIONS (6)
  - Suicide attempt [Unknown]
  - Duodenal ulcer haemorrhage [Unknown]
  - Toxicity to various agents [Unknown]
  - Intentional overdose [Unknown]
  - Blood loss anaemia [Unknown]
  - Drug peak level [Unknown]

NARRATIVE: CASE EVENT DATE: 20210901
